FAERS Safety Report 8927057 (Version 2)
Quarter: 2012Q4

REPORT INFORMATION
  Report Type: Report from Study
  Country: GR (occurrence: GR)
  Receive Date: 20121127
  Receipt Date: 20121214
  Transmission Date: 20130627
  Serious: Yes (Other)
  Sender: FDA-Public Use
  Company Number: GR-ELI_LILLY_AND_COMPANY-GR201211004746

PATIENT
  Age: 36 Year
  Sex: Female
  Weight: 55 kg

DRUGS (4)
  1. INSULIN BASAL [Suspect]
     Indication: TYPE 1 DIABETES MELLITUS
     Dosage: 36 u, bid
     Route: 058
     Dates: start: 20121108, end: 20121115
  2. INSULIN BASAL [Suspect]
     Dosage: 6 u, unknown
     Route: 058
  3. INSULIN BASAL [Suspect]
     Dosage: 18 u, each evening
     Route: 058
  4. LISPRO [Suspect]
     Indication: TYPE 1 DIABETES MELLITUS
     Dosage: 24 u, tid
     Route: 058
     Dates: start: 20121108

REACTIONS (4)
  - Hypoglycaemia [Recovered/Resolved]
  - Fall [None]
  - Loss of consciousness [None]
  - Incorrect dose administered [None]
